FAERS Safety Report 9753083 (Version 2)
Quarter: 2013Q4

REPORT INFORMATION
  Report Type: Spontaneous
  Country: US (occurrence: US)
  Receive Date: 20131213
  Receipt Date: 20131230
  Transmission Date: 20140711
  Serious: Yes (Other)
  Sender: FDA-Public Use
  Company Number: US-BAYER-2013-152630

PATIENT
  Age: 18 Year
  Sex: Female
  Weight: 133.79 kg

DRUGS (2)
  1. YAZ [Suspect]
  2. PORTIA-28 [Concomitant]
     Dosage: UNK

REACTIONS (3)
  - Cholecystectomy [None]
  - Cholecystitis chronic [None]
  - Biliary dyskinesia [None]
